FAERS Safety Report 7588181-2 (Version None)
Quarter: 2011Q3

REPORT INFORMATION
  Report Type: 
  Country: None (occurrence: None)
  Receive Date: 20110705
  Receipt Date: 20110623
  Transmission Date: 20111222
  Serious: Yes (Other)
  Sender: FDA-Public Use
  Company Number: US-BAYER-201027117NA

PATIENT
  Age: 31 Year
  Sex: Female
  Weight: 132 kg

DRUGS (8)
  1. VITAMINE C [Concomitant]
  2. GLUCOPHAGE [Concomitant]
     Indication: PRODUCT USED FOR UNKNOWN INDICATION
  3. ZOLOFT [Concomitant]
     Dosage: UNK
     Dates: start: 20020101
  4. YAZ [Suspect]
     Indication: MENSTRUATION IRREGULAR
  5. YAZ [Suspect]
     Indication: PREMENSTRUAL SYNDROME
     Dosage: 1 TAB /DAY
     Route: 048
     Dates: start: 20080801, end: 20090301
  6. FOLIC ACID [Concomitant]
     Dosage: UNK
  7. TUMS [CALCIUM CARBONATE] [Concomitant]
     Dosage: OCCASIONALLY
  8. METFORMIN HCL [Concomitant]
     Dosage: 500 MG, 4 DAILY

REACTIONS (9)
  - ABDOMINAL PAIN UPPER [None]
  - ABDOMINAL DISTENSION [None]
  - VOMITING [None]
  - BILIARY COLIC [None]
  - HAEMATOCHEZIA [None]
  - NAUSEA [None]
  - CHOLECYSTITIS CHRONIC [None]
  - CHOLELITHIASIS [None]
  - DIARRHOEA [None]
